FAERS Safety Report 22027360 (Version 2)
Quarter: 2024Q1

REPORT INFORMATION
  Report Type: Spontaneous
  Country: US (occurrence: None)
  Receive Date: 20230223
  Receipt Date: 20240206
  Transmission Date: 20240410
  Serious: No
  Sender: FDA-Public Use
  Company Number: US-ROCHE-3216551

PATIENT
  Sex: Female

DRUGS (2)
  1. XOLAIR [Suspect]
     Active Substance: OMALIZUMAB
     Indication: Urticaria
     Route: 058
     Dates: start: 20220915
  2. XOLAIR [Suspect]
     Active Substance: OMALIZUMAB

REACTIONS (7)
  - Off label use [Unknown]
  - Brain fog [Unknown]
  - Daydreaming [Unknown]
  - Hypersensitivity [Unknown]
  - Hypotension [Unknown]
  - Dizziness [Unknown]
  - Diarrhoea [Unknown]
